FAERS Safety Report 11681140 (Version 3)
Quarter: 2015Q4

REPORT INFORMATION
  Report Type: Spontaneous
  Country: US (occurrence: US)
  Receive Date: 20151027
  Receipt Date: 20151110
  Transmission Date: 20160304
  Serious: No
  Sender: FDA-Public Use
  Company Number: US-ELI_LILLY_AND_COMPANY-US201009005550

PATIENT
  Age: 55 Year
  Sex: Female

DRUGS (5)
  1. FORTEO [Suspect]
     Active Substance: TERIPARATIDE
     Dosage: 20 UG, DAILY (1/D)
  2. FORTEO [Suspect]
     Active Substance: TERIPARATIDE
     Indication: OSTEOPOROSIS
     Dosage: 20 UG, DAILY (1/D)
     Dates: start: 20100827
  3. FORTEO [Suspect]
     Active Substance: TERIPARATIDE
     Dosage: 20 UG, QD
  4. FORTEO [Suspect]
     Active Substance: TERIPARATIDE
     Dosage: 20 UG, QD
  5. FORTEO [Suspect]
     Active Substance: TERIPARATIDE
     Dosage: 20 UG, QD

REACTIONS (21)
  - Skin hypertrophy [Unknown]
  - Muscle spasms [Unknown]
  - Vertigo [Unknown]
  - Insomnia [Not Recovered/Not Resolved]
  - Sinus disorder [Unknown]
  - Back pain [Unknown]
  - Dizziness [Unknown]
  - Pain in extremity [Not Recovered/Not Resolved]
  - Quality of life decreased [Unknown]
  - Contusion [Unknown]
  - Pain [Unknown]
  - Joint lock [Unknown]
  - Abnormal sleep-related event [Unknown]
  - Fatigue [Unknown]
  - Bone pain [Unknown]
  - Gait disturbance [Unknown]
  - Injection site pain [Not Recovered/Not Resolved]
  - Injection site bruising [Unknown]
  - Nausea [Not Recovered/Not Resolved]
  - Upper respiratory tract infection [Unknown]
  - Arthralgia [Not Recovered/Not Resolved]

NARRATIVE: CASE EVENT DATE: 201009
